FAERS Safety Report 12217813 (Version 3)
Quarter: 2016Q2

REPORT INFORMATION
  Report Type: Spontaneous
  Country: US (occurrence: US)
  Receive Date: 20160329
  Receipt Date: 20160426
  Transmission Date: 20160815
  Serious: No
  Sender: FDA-Public Use
  Company Number: US-BAYER-2016-055458

PATIENT
  Age: 74 Year
  Sex: Female
  Weight: 68.27 kg

DRUGS (2)
  1. CENTRUM SILVER [Concomitant]
     Active Substance: MINERALS\VITAMINS
  2. ALEVE [Suspect]
     Active Substance: NAPROXEN SODIUM
     Indication: ARTHRITIS
     Dosage: 1 DF, QD
     Route: 048
     Dates: start: 2014, end: 201603

REACTIONS (2)
  - Pruritus generalised [Recovered/Resolved]
  - Product use issue [None]

NARRATIVE: CASE EVENT DATE: 2014
